FAERS Safety Report 13906693 (Version 5)
Quarter: 2018Q1

REPORT INFORMATION
  Report Type: Spontaneous
  Country: US (occurrence: US)
  Receive Date: 20170825
  Receipt Date: 20180307
  Transmission Date: 20180508
  Serious: No
  Sender: FDA-Public Use
  Company Number: US-ACTELION-A-NJ2017-158620

PATIENT
  Age: 61 Year
  Sex: Female
  Weight: 77.98 kg

DRUGS (6)
  1. UPTRAVI [Suspect]
     Active Substance: SELEXIPAG
     Dosage: 1200 MCG, BID
     Route: 048
  2. ADEMPAS [Concomitant]
     Active Substance: RIOCIGUAT
     Dosage: UNK
  3. UPTRAVI [Suspect]
     Active Substance: SELEXIPAG
     Dosage: 1600 MG, BID
     Route: 048
     Dates: start: 20170818
  4. LETAIRIS [Concomitant]
     Active Substance: AMBRISENTAN
  5. WARFARIN [Concomitant]
     Active Substance: WARFARIN
  6. UPTRAVI [Suspect]
     Active Substance: SELEXIPAG
     Indication: PULMONARY ARTERIAL HYPERTENSION
     Dosage: UNK
     Route: 048
     Dates: start: 20170619

REACTIONS (8)
  - Dyspnoea [Not Recovered/Not Resolved]
  - Pain in extremity [Unknown]
  - Diarrhoea [Unknown]
  - Dizziness [Recovering/Resolving]
  - Muscle spasms [Recovering/Resolving]
  - Pain in jaw [Unknown]
  - Palpitations [Recovering/Resolving]
  - Oedema peripheral [Unknown]

NARRATIVE: CASE EVENT DATE: 20170822
